FAERS Safety Report 9140603 (Version 1)
Quarter: 2013Q1

REPORT INFORMATION
  Report Type: Spontaneous
  Country: US (occurrence: US)
  Receive Date: 20130305
  Receipt Date: 20130305
  Transmission Date: 20140127
  Serious: Yes (Death)
  Sender: FDA-Public Use
  Company Number: US-INCYTE CORPORATION-2013IN000399

PATIENT
  Age: 76 Year
  Sex: Female

DRUGS (4)
  1. JAKAFI [Suspect]
     Indication: MYELOFIBROSIS
     Dosage: 20 MG, BID
     Route: 048
     Dates: start: 201209, end: 20130210
  2. HYDROXYUREA [Concomitant]
  3. PROZAC [Concomitant]
  4. GABAPENTIN [Concomitant]

REACTIONS (1)
  - Lung neoplasm malignant [Fatal]
